FAERS Safety Report 15462548 (Version 1)
Quarter: 2018Q4

REPORT INFORMATION
  Report Type: Spontaneous
  Country: US (occurrence: US)
  Receive Date: 20181001
  Receipt Date: 20181001
  Transmission Date: 20190204
  Serious: Yes (Other)
  Sender: FDA-Public Use
  Company Number: None

PATIENT
  Age: 66 Year
  Sex: Female
  Weight: 88.45 kg

DRUGS (20)
  1. VALSARTAN. [Suspect]
     Active Substance: VALSARTAN
  2. CALCIUM [Concomitant]
     Active Substance: CALCIUM
  3. PEPCID [Concomitant]
     Active Substance: FAMOTIDINE
  4. DOCUSATE SODIUM. [Concomitant]
     Active Substance: DOCUSATE SODIUM
  5. OXYCODONE [Concomitant]
     Active Substance: OXYCODONE
  6. FAMOTIDINE. [Concomitant]
     Active Substance: FAMOTIDINE
  7. TYLENOL [Concomitant]
     Active Substance: ACETAMINOPHEN
  8. MAGNESIUM [Concomitant]
     Active Substance: MAGNESIUM
  9. AMLODIPINE BESYLATE. [Suspect]
     Active Substance: AMLODIPINE BESYLATE
     Indication: BLOOD PRESSURE MEASUREMENT
     Dosage: ?          QUANTITY:IF PI?!;?
     Dates: start: 20161006, end: 20171218
  10. IRON [Concomitant]
     Active Substance: IRON
  11. GABAPENTIN. [Concomitant]
     Active Substance: GABAPENTIN
  12. ATORVASTATIN [Suspect]
     Active Substance: ATORVASTATIN
  13. HYDROCHLOROTHIAZIDE. [Suspect]
     Active Substance: HYDROCHLOROTHIAZIDE
  14. BLOOD THINNER [Concomitant]
     Active Substance: UNSPECIFIED INGREDIENT
  15. METRONIDAZOLE. [Concomitant]
     Active Substance: METRONIDAZOLE
  16. VITAMIN D [Concomitant]
     Active Substance: CHOLECALCIFEROL
  17. ZINC. [Concomitant]
     Active Substance: ZINC
  18. OMEPRAZOLE. [Suspect]
     Active Substance: OMEPRAZOLE
  19. DICLOFENAC [Concomitant]
     Active Substance: DICLOFENAC
  20. NEOMYCIN. [Concomitant]
     Active Substance: NEOMYCIN

REACTIONS (10)
  - Confusional state [None]
  - Joint swelling [None]
  - Pruritus [None]
  - Chest pain [None]
  - Memory impairment [None]
  - Swelling [None]
  - Constipation [None]
  - Peripheral swelling [None]
  - Impaired driving ability [None]
  - Dizziness [None]

NARRATIVE: CASE EVENT DATE: 20160214
